FAERS Safety Report 8072742-0 (Version None)
Quarter: 2012Q1

REPORT INFORMATION
  Report Type: 
  Country: None (occurrence: None)
  Receive Date: 20120126
  Receipt Date: 20120120
  Transmission Date: 20120608
  Serious: Yes (Other)
  Sender: FDA-Public Use
  Company Number: NO-NAPPMUNDI-GBR-2012-0009642

PATIENT
  Sex: Male

DRUGS (7)
  1. EFFEXOR [Interacting]
     Indication: DEPRESSION
     Dosage: 45375 MG, UNK
     Route: 048
  2. TRILAFON                           /00023401/ [Concomitant]
     Dosage: 8 MG, UNK
  3. LAMICTAL [Concomitant]
     Dosage: 200 MG, UNK
  4. TRUXAL                             /00012101/ [Concomitant]
     Dosage: 45 MG, UNK
  5. NEURONTIN [Concomitant]
     Dosage: 800 MG, UNK
  6. OXYCONTIN [Suspect]
     Indication: PAIN
     Dosage: 10 MG, UNK
     Route: 048
  7. NITRAZEPAM [Concomitant]
     Dosage: 7.5 MG, UNK

REACTIONS (3)
  - CONFUSIONAL STATE [None]
  - DRUG INTERACTION [None]
  - APHASIA [None]
